FAERS Safety Report 5606315-3 (Version None)
Quarter: 2008Q1

REPORT INFORMATION
  Report Type: 
  Country: None (occurrence: None)
  Receive Date: 20080129
  Receipt Date: 20070606
  Transmission Date: 20080703
  Serious: No
  Sender: FDA-Public Use
  Company Number: A0654432A

PATIENT
  Age: 52 Year
  Sex: Male

DRUGS (2)
  1. BUPROPION HCL [Suspect]
     Dosage: 150MG PER DAY
     Route: 048
     Dates: start: 20000101, end: 20020101
  2. BUPROPION HCL [Suspect]
     Indication: DEPRESSION
     Dosage: 300MG PER DAY
     Route: 048
     Dates: start: 20000101, end: 20020101

REACTIONS (2)
  - BLADDER DISORDER [None]
  - DRUG INEFFECTIVE [None]
